FAERS Safety Report 8487832-8 (Version None)
Quarter: 2012Q3

REPORT INFORMATION
  Report Type: 
  Country: None (occurrence: None)
  Receive Date: 20120705
  Receipt Date: 20120627
  Transmission Date: 20120928
  Serious: Yes (Hospitalization)
  Sender: FDA-Public Use
  Company Number: JP-PFIZER INC-2012155205

PATIENT
  Age: 80 Year
  Sex: Male

DRUGS (14)
  1. LYRICA [Suspect]
     Indication: NEURALGIA
     Dosage: 25 MG, 1X/DAY
     Route: 048
     Dates: start: 20111108
  2. LYRICA [Suspect]
     Dosage: 150 MG/DAY
     Route: 048
     Dates: end: 20120314
  3. GASMOTIN [Concomitant]
     Dosage: UNK
  4. ISOSORBIDE MONONITRATE [Concomitant]
     Dosage: UNK
  5. ASPIRIN [Concomitant]
     Dosage: UNK
  6. LYRICA [Suspect]
     Dosage: 50 MG/DAY
     Route: 048
  7. BUKURYO-INGO-HANGE-KOUBOKU-TO [Concomitant]
     Dosage: UNK
  8. CALBLOCK [Concomitant]
     Dosage: UNK
  9. OPALMON [Concomitant]
     Dosage: UNK
  10. LOXONIN [Concomitant]
     Dosage: UNK
  11. HACHIMIGAN [Concomitant]
     Dosage: UNK
  12. LYRICA [Suspect]
     Dosage: 75 MG/DAY
     Route: 048
  13. LYRICA [Suspect]
     Dosage: 225 MG/DAY
     Route: 048
     Dates: start: 20120315, end: 20120412
  14. LOXONIN [Concomitant]
     Dosage: UNK

REACTIONS (3)
  - DYSPNOEA [None]
  - MALAISE [None]
  - INTERSTITIAL LUNG DISEASE [None]
